FAERS Safety Report 6140936-7 (Version None)
Quarter: 2009Q1

REPORT INFORMATION
  Report Type: 
  Country: None (occurrence: None)
  Receive Date: 20090331
  Receipt Date: 20090325
  Transmission Date: 20090719
  Serious: Yes (Disabling, Other)
  Sender: FDA-Public Use
  Company Number: ADR1042009

PATIENT
  Age: 58 Year
  Sex: Female

DRUGS (9)
  1. CIPROFLOXACIN [Suspect]
     Dosage: 500 MG TWICE PER DAY
     Route: 048
  2. COD LIVER OIL [Concomitant]
  3. ENTROPHEN DR TABLETS [Concomitant]
  4. ESTRACE [Concomitant]
  5. MOTRIN [Concomitant]
  6. MULTIVITAMINE(S) [Concomitant]
  7. LOVAZA [Concomitant]
  8. VITAMIN B COMPLEX CAP [Concomitant]
  9. VITAMIN D [Concomitant]

REACTIONS (4)
  - ANXIETY [None]
  - ARTHRALGIA [None]
  - CONDITION AGGRAVATED [None]
  - DISORIENTATION [None]
